FAERS Safety Report 9125199 (Version 1)
Quarter: 2013Q1

REPORT INFORMATION
  Report Type: Spontaneous
  Country: DK (occurrence: FR)
  Receive Date: 20130117
  Receipt Date: 20130117
  Transmission Date: 20140127
  Serious: Yes (Hospitalization)
  Sender: FDA-Public Use
  Company Number: FR-FRI-1000041706

PATIENT
  Age: 74 Year
  Sex: Male

DRUGS (11)
  1. ESCITALOPRAM [Suspect]
     Dosage: 20 MG
     Route: 048
     Dates: end: 20121103
  2. PRADAXA [Suspect]
     Indication: ATRIAL FIBRILLATION
     Dosage: 220 MG
     Route: 048
     Dates: start: 201210, end: 20121103
  3. PRADAXA [Suspect]
     Dosage: 220 MG
     Route: 048
     Dates: start: 20121106
  4. KARDEGIC [Suspect]
     Dosage: 75 MG
     Route: 048
     Dates: end: 20121103
  5. KARDEGIC [Suspect]
     Dosage: 75 MG
     Route: 048
     Dates: start: 20121106
  6. AMIODARONE [Concomitant]
  7. HEMIGOXINE [Concomitant]
  8. SIMVASTATINE [Concomitant]
  9. TAMSULOSINE [Concomitant]
  10. BURINEX [Concomitant]
  11. NOZINAN [Concomitant]

REACTIONS (1)
  - Haemorrhage [Recovered/Resolved]
